FAERS Safety Report 6856363-0 (Version None)
Quarter: 2010Q2

REPORT INFORMATION
  Report Type: 
  Country: None (occurrence: None)
  Receive Date: 20100630
  Receipt Date: 20100325
  Transmission Date: 20101027
  Serious: No
  Sender: FDA-Public Use
  Company Number: 1000012723

PATIENT

DRUGS (2)
  1. BYSTOLIC [Suspect]
     Indication: HYPERTENSION
     Dosage: (10 MG), ORAL
     Route: 048
     Dates: start: 20090701
  2. DIOVAN [Concomitant]

REACTIONS (3)
  - ASTHENIA [None]
  - DEPRESSION [None]
  - MALAISE [None]
